FAERS Safety Report 7399884-7 (Version None)
Quarter: 2011Q2

REPORT INFORMATION
  Report Type: 
  Country: None (occurrence: None)
  Receive Date: 20110407
  Receipt Date: 20110328
  Transmission Date: 20111010
  Serious: Yes (Other)
  Sender: FDA-Public Use
  Company Number: US-SANOFI-AVENTIS-2011SA019803

PATIENT
  Sex: Female

DRUGS (2)
  1. MULTAQ [Suspect]
     Route: 065
  2. DABIGATRAN ETEXILATE [Suspect]
     Route: 065

REACTIONS (1)
  - EYE HAEMORRHAGE [None]
